FAERS Safety Report 10420139 (Version 1)
Quarter: 2014Q3

REPORT INFORMATION
  Report Type: Spontaneous
  Country: US (occurrence: None)
  Receive Date: 20140701
  Receipt Date: 20140701
  Transmission Date: 20150326
  Serious: No
  Sender: FDA-Public Use
  Company Number: 1000067703

PATIENT
  Age: 76 Year
  Sex: Male

DRUGS (6)
  1. LOSARTAN (LOSARTAN) (LOSARTAN) [Concomitant]
     Active Substance: LOSARTAN
  2. PLAVIX [Concomitant]
     Active Substance: CLOPIDOGREL BISULFATE
  3. LINZESS [Suspect]
     Active Substance: LINACLOTIDE
     Dosage: 145 MCG (145 MCG, 1 IN 1 D), ORAL
     Route: 048
     Dates: start: 20140528
  4. VIT B COMPLEX (VITAMIN B COMPLEX) (VITAMIN B COMPLEX) [Concomitant]
  5. METOPROLOL (METOPROLOL) (MMETOPROLOL) [Concomitant]
  6. ASPIRIN (ACETYLSALICYLIC ACID) (ACETYLSALICYLIC ACID) [Concomitant]
     Active Substance: ASPIRIN

REACTIONS (2)
  - Abdominal pain upper [None]
  - Diarrhoea [None]

NARRATIVE: CASE EVENT DATE: 20140528
